FAERS Safety Report 20345531 (Version 1)
Quarter: 2022Q1

REPORT INFORMATION
  Report Type: Spontaneous
  Country: TW (occurrence: TW)
  Receive Date: 20220118
  Receipt Date: 20220118
  Transmission Date: 20220423
  Serious: Yes (Death)
  Sender: FDA-Public Use
  Company Number: TW-MYLANLABS-2022M1003165

PATIENT
  Age: 56 Year
  Sex: Male

DRUGS (9)
  1. IRINOTECAN [Suspect]
     Active Substance: IRINOTECAN
     Indication: Colon cancer stage IV
     Dosage: ADMINISTERED AS PART OF FOLFOXIRI REGIMEN
     Route: 065
  2. OXALIPLATIN [Suspect]
     Active Substance: OXALIPLATIN
     Indication: Colon cancer stage IV
     Dosage: ADMINISTERED AS PART OF FOLFOX AND FOLFOXIRI REGIMEN.
     Route: 065
  3. FLUOROURACIL [Suspect]
     Active Substance: FLUOROURACIL
     Indication: Colon cancer stage IV
     Dosage: ADMINISTERED AS PART OF FOLFOX AND FOLFOXIRI REGIMEN.
     Route: 065
  4. BEVACIZUMAB [Suspect]
     Active Substance: BEVACIZUMAB
     Indication: Colon cancer stage IV
     Dosage: UNK
     Route: 065
  5. CERITINIB [Suspect]
     Active Substance: CERITINIB
     Indication: Colon cancer stage IV
     Dosage: ADMINISTERED FOR 3 MONTHS.
     Route: 065
  6. LEUCOVORIN [Suspect]
     Active Substance: LEUCOVORIN
     Indication: Colon cancer stage IV
     Dosage: ADMINISTERED AS PART OF FOLFOX AND FOLFOXIRI REGIMEN
     Route: 065
  7. PANITUMUMAB [Suspect]
     Active Substance: PANITUMUMAB
     Indication: Colon cancer stage IV
     Dosage: UNK
     Route: 065
  8. BRIGATINIB [Suspect]
     Active Substance: BRIGATINIB
     Indication: Colon cancer stage IV
     Dosage: UNK
     Route: 065
  9. ALECTINIB [Suspect]
     Active Substance: ALECTINIB
     Indication: Colon cancer stage IV
     Route: 065

REACTIONS (1)
  - Drug ineffective [Fatal]
